FAERS Safety Report 8102476-5 (Version None)
Quarter: 2012Q1

REPORT INFORMATION
  Report Type: 
  Country: None (occurrence: None)
  Receive Date: 20120201
  Receipt Date: 20120120
  Transmission Date: 20120608
  Serious: No
  Sender: FDA-Public Use
  Company Number: US-ELI_LILLY_AND_COMPANY-US201201006378

PATIENT
  Age: 50 Year
  Sex: Male

DRUGS (3)
  1. CYMBALTA [Suspect]
     Dosage: 30 MG, QD
     Dates: start: 20111220
  2. CYMBALTA [Suspect]
     Dosage: 30 MG, QD
  3. CYMBALTA [Suspect]
     Dosage: 60 MG, QD
     Dates: start: 20120101

REACTIONS (4)
  - DEPRESSION [None]
  - HEPATIC STEATOSIS [None]
  - SEXUAL DYSFUNCTION [None]
  - SINUSITIS [None]
